FAERS Safety Report 9444124 (Version 1)
Quarter: 2013Q3

REPORT INFORMATION
  Report Type: Spontaneous
  Country: US (occurrence: None)
  Receive Date: 20130806
  Receipt Date: 20130806
  Transmission Date: 20140515
  Serious: Yes (Other)
  Sender: FDA-Public Use
  Company Number: None

PATIENT
  Age: 71 None
  Sex: Male

DRUGS (10)
  1. AGGRENOX [Suspect]
     Indication: CEREBROVASCULAR ACCIDENT PROPHYLAXIS
     Route: 048
     Dates: start: 20130706, end: 20130708
  2. NORVASC [Concomitant]
  3. COREG [Concomitant]
  4. GLYPRIDE [Concomitant]
  5. VITAMIN D3 [Concomitant]
  6. LOSARTAN POTASSIUM [Concomitant]
  7. SENOKOT [Concomitant]
  8. PLAVIX [Concomitant]
  9. VITAMIN D-3 [Concomitant]
  10. ASPIRIN [Concomitant]

REACTIONS (5)
  - Muscle spasms [None]
  - Abdominal pain upper [None]
  - Insomnia [None]
  - Muscle spasms [None]
  - Headache [None]
